FAERS Safety Report 17575451 (Version 2)
Quarter: 2020Q2

REPORT INFORMATION
  Report Type: Spontaneous
  Country: GB (occurrence: GB)
  Receive Date: 20200324
  Receipt Date: 20200401
  Transmission Date: 20200713
  Serious: Yes (Disabling)
  Sender: FDA-Public Use
  Company Number: GB-TEVA-2020-GB-1207718

PATIENT
  Age: 83 Year
  Sex: Female
  Weight: 80 kg

DRUGS (10)
  1. DONEPEZIL HYDROCHLORIDE. [Concomitant]
     Active Substance: DONEPEZIL HYDROCHLORIDE
     Dosage: 1 DOSAGE FORMS
     Dates: start: 20191106
  2. ADCAL [Concomitant]
     Dosage: 2 DOSAGE FORM
     Dates: start: 20191106
  3. LEVOTHYROXINE. [Concomitant]
     Active Substance: LEVOTHYROXINE
     Dosage: MORNING. 1 DOSAGE FORMS
     Dates: start: 20191106
  4. BENDROFLUMETHIAZIDE [Concomitant]
     Active Substance: BENDROFLUMETHIAZIDE
     Dosage: EACH MORNING. 1 DOSAGE FORMS
     Dates: start: 20191106
  5. EPILIM [Concomitant]
     Active Substance: VALPROATE SODIUM
     Dosage: 6 DOSAGE FORMS
     Dates: start: 20191106
  6. AQUEOUS CREAM [Concomitant]
     Dosage: APPLY AS NEEDED
     Dates: start: 20191106
  7. ROSUVASTATIN. [Suspect]
     Active Substance: ROSUVASTATIN
     Dosage: 20 MG
     Dates: start: 20191205
  8. LERCANIDIPINE HYDROCHLORIDE [Concomitant]
     Active Substance: LERCANIDIPINE HYDROCHLORIDE
     Dosage: 1 DOSAGE FORM
     Dates: start: 20191106
  9. NITROFURANTOIN. [Concomitant]
     Active Substance: NITROFURANTOIN
     Dosage: FOR 3 DAYS. 100 MG
     Dates: start: 20200225, end: 20200228
  10. HYLO-FORTE [Concomitant]
     Active Substance: HYALURONATE SODIUM
     Dosage: USE AS DIRECTED
     Dates: start: 20191106

REACTIONS (1)
  - Muscle spasms [Unknown]

NARRATIVE: CASE EVENT DATE: 20191206
